FAERS Safety Report 6075640-7 (Version None)
Quarter: 2009Q1

REPORT INFORMATION
  Report Type: 
  Country: None (occurrence: None)
  Receive Date: 20090210
  Receipt Date: 20090210
  Transmission Date: 20090719
  Serious: Yes (Other)
  Sender: FDA-Public Use
  Company Number: None

PATIENT
  Sex: Female

DRUGS (1)
  1. CEREBYX [Suspect]
     Dates: start: 20071117, end: 20071117

REACTIONS (2)
  - DYSPNOEA [None]
  - PRURITUS [None]
